FAERS Safety Report 4379980-9 (Version None)
Quarter: 2004Q2

REPORT INFORMATION
  Report Type: 
  Country: None (occurrence: None)
  Receive Date: 20040614
  Receipt Date: 20040603
  Transmission Date: 20050107
  Serious: Yes (Other)
  Sender: FDA-Public Use
  Company Number: OMPQ-NO-0406S-0479

PATIENT
  Age: 74 Year
  Sex: Male
  Weight: 55 kg

DRUGS (10)
  1. OMNIPAQUE 240 [Suspect]
     Indication: VOCAL CORD PARALYSIS
     Dosage: 100 ML, SINGLE DOSE, I.V.
     Route: 042
     Dates: start: 20040601, end: 20040601
  2. DELAPRIL HYDROCHLORIDE (ADECUT) [Concomitant]
  3. CARVDEILOL (ARTIST) [Concomitant]
  4. NIFEDIPINE (ADALAT L) [Concomitant]
  5. TICLOPIDINE (PANALDINE) [Concomitant]
  6. NICERGOLINE (SERMION) [Concomitant]
  7. TAMSULOSIN HYDROCHLORIDE (HARNAL) [Concomitant]
  8. CLOTIAZEPAM (RIZE) [Concomitant]
  9. MAPROTILINE HYDROCHORIDE (LUDIOMIL) [Concomitant]
  10. SENNA (PURSENNID) [Concomitant]

REACTIONS (9)
  - BLOOD PH DECREASED [None]
  - BLOOD PRESSURE IMMEASURABLE [None]
  - GASTRIC HAEMORRHAGE [None]
  - GENERALISED ERYTHEMA [None]
  - HAEMATEMESIS [None]
  - OXYGEN SATURATION IMMEASURABLE [None]
  - PANCREATITIS ACUTE [None]
  - PCO2 INCREASED [None]
  - SHOCK [None]
